FAERS Safety Report 4639886-4 (Version None)
Quarter: 2005Q2

REPORT INFORMATION
  Report Type: 
  Country: None (occurrence: None)
  Receive Date: 20050420
  Receipt Date: 20050412
  Transmission Date: 20051028
  Serious: Yes (Other)
  Sender: FDA-Public Use
  Company Number: PHBS2005US05267

PATIENT
  Age: 41 Year
  Sex: Male

DRUGS (3)
  1. CLOFAZIMINE [Suspect]
     Indication: LEPROMATOUS LEPROSY
  2. RIFAMPICIN [Suspect]
  3. DAPSONE [Suspect]

REACTIONS (4)
  - OEDEMA PERIPHERAL [None]
  - RASH [None]
  - RED BLOOD CELL SEDIMENTATION RATE INCREASED [None]
  - VASCULITIS [None]
